FAERS Safety Report 17070302 (Version 2)
Quarter: 2019Q4

REPORT INFORMATION
  Report Type: Spontaneous
  Country: US (occurrence: US)
  Receive Date: 20191125
  Receipt Date: 20191226
  Transmission Date: 20200122
  Serious: No
  Sender: FDA-Public Use
  Company Number: US-TORRENT-00009513

PATIENT
  Age: 35 Year
  Sex: Male
  Weight: 63 kg

DRUGS (1)
  1. OLMESARTAN MEDOXOMIL. [Suspect]
     Active Substance: OLMESARTAN MEDOXOMIL
     Indication: HYPERTENSION
     Dosage: UNKNOWN
     Route: 048
     Dates: start: 201903, end: 20191211

REACTIONS (3)
  - Product odour abnormal [Unknown]
  - Rash [Recovering/Resolving]
  - Abdominal pain upper [Recovering/Resolving]

NARRATIVE: CASE EVENT DATE: 20191110
